FAERS Safety Report 8032597-7 (Version None)
Quarter: 2011Q4

REPORT INFORMATION
  Report Type: 
  Country: None (occurrence: None)
  Receive Date: 20111223
  Receipt Date: 20111209
  Transmission Date: 20120403
  Serious: Yes (Other)
  Sender: FDA-Public Use
  Company Number: 2011SP053510

PATIENT
  Age: 35 Year
  Sex: Female
  Weight: 49.8957 kg

DRUGS (4)
  1. CLARITIN-D 24 HOUR [Suspect]
     Indication: URTICARIA
     Dosage: 10 MG;QD;PO
     Route: 048
     Dates: start: 20110501, end: 20111101
  2. CLARITIN-D 24 HOUR [Suspect]
     Indication: SEASONAL ALLERGY
     Dosage: 10 MG;QD;PO
     Route: 048
     Dates: start: 20110501, end: 20111101
  3. BENADRYL [Suspect]
     Indication: URTICARIA
  4. PREDNISONE TAB [Concomitant]

REACTIONS (3)
  - HALLUCINATION [None]
  - ANXIETY [None]
  - TREMOR [None]
